FAERS Safety Report 9771741 (Version 3)
Quarter: 2014Q1

REPORT INFORMATION
  Report Type: Spontaneous
  Country: JP (occurrence: JP)
  Receive Date: 20131219
  Receipt Date: 20140327
  Transmission Date: 20141002
  Serious: Yes (Other)
  Sender: FDA-Public Use
  Company Number: JP-AMGEN-JPNSP2013088886

PATIENT
  Age: 8 Decade
  Sex: Female
  Weight: 56 kg

DRUGS (3)
  1. PRALIA [Suspect]
     Indication: OSTEOPOROSIS
     Dosage: 60 MG, Q6MO
     Route: 058
     Dates: start: 201311
  2. PRALIA [Suspect]
     Indication: SPINAL COMPRESSION FRACTURE
  3. VITAMIN D NOS [Concomitant]
     Indication: PRODUCT USED FOR UNKNOWN INDICATION
     Dosage: 0.75 MUG, QD
     Dates: start: 20130617

REACTIONS (6)
  - Dizziness [Unknown]
  - Stomatitis [Not Recovered/Not Resolved]
  - Glossitis [Not Recovered/Not Resolved]
  - Glossodynia [Unknown]
  - Oral candidiasis [Unknown]
  - Gingival pain [Unknown]
